FAERS Safety Report 7952598-4 (Version None)
Quarter: 2011Q4

REPORT INFORMATION
  Report Type: 
  Country: None (occurrence: None)
  Receive Date: 20111201
  Receipt Date: 20111123
  Transmission Date: 20120403
  Serious: Yes (Hospitalization, Other)
  Sender: FDA-Public Use
  Company Number: US-ABBOTT-11P-163-0877185-00

PATIENT
  Sex: Male
  Weight: 40.86 kg

DRUGS (9)
  1. HUMIRA [Suspect]
     Indication: CROHN'S DISEASE
     Route: 058
     Dates: start: 20110901, end: 20110901
  2. TRAMADOL HCL [Concomitant]
     Indication: PAIN
     Dosage: AS NEEDED
  3. LOMOTIL [Concomitant]
     Indication: DIARRHOEA
     Dosage: AS NEEDED
  4. HUMIRA [Suspect]
     Route: 058
  5. HUMIRA [Suspect]
     Route: 058
  6. ONDANSETRON [Concomitant]
     Indication: NAUSEA
     Dosage: AS NEEDED
  7. VORICONAZOLE [Concomitant]
     Indication: RESPIRATORY TRACT INFECTION FUNGAL
  8. PROMETHAZINE [Concomitant]
     Indication: CROHN'S DISEASE
  9. MIRTAZAPINE [Concomitant]
     Indication: APPETITE DISORDER

REACTIONS (7)
  - ABDOMINAL DISTENSION [None]
  - BLOOD POTASSIUM DECREASED [None]
  - GASTROINTESTINAL HYPOMOTILITY [None]
  - RENAL FAILURE [None]
  - RECTAL DISCHARGE [None]
  - BLOOD MAGNESIUM DECREASED [None]
  - DEHYDRATION [None]
